FAERS Safety Report 18555261 (Version 1)
Quarter: 2020Q4

REPORT INFORMATION
  Report Type: Spontaneous
  Country: CA (occurrence: CA)
  Receive Date: 20201127
  Receipt Date: 20201127
  Transmission Date: 20210114
  Serious: Yes (Other)
  Sender: FDA-Public Use
  Company Number: CA-ASTRAZENECA-2020SF52480

PATIENT
  Age: 58 Year
  Sex: Female

DRUGS (6)
  1. OLAPARIB. [Suspect]
     Active Substance: OLAPARIB
     Indication: OVARIAN CANCER
     Dosage: 300 MG
     Route: 048
  2. MONTELUKAST [Concomitant]
     Active Substance: MONTELUKAST SODIUM
     Indication: IMMUNE TOLERANCE INDUCTION
     Dosage: 10 MG
  3. CETRIZINE [Concomitant]
     Active Substance: CETIRIZINE HYDROCHLORIDE
     Indication: IMMUNE TOLERANCE INDUCTION
     Dosage: 20 MG
     Route: 048
  4. OLAPARIB. [Suspect]
     Active Substance: OLAPARIB
     Indication: OVARIAN CANCER
     Dosage: AT A CUMULATIVE DOSE OF 450 MG DURING THE DESENSITIZATION
     Route: 048
  5. DEXAMETHASONE. [Concomitant]
     Active Substance: DEXAMETHASONE
     Indication: IMMUNE TOLERANCE INDUCTION
     Dosage: 10 MG
     Route: 042
  6. RANITIDINE. [Concomitant]
     Active Substance: RANITIDINE
     Indication: IMMUNE TOLERANCE INDUCTION
     Dosage: 50 MG
     Route: 042

REACTIONS (6)
  - Angioedema [Recovered/Resolved]
  - Nausea [Recovered/Resolved]
  - Flushing [Recovered/Resolved]
  - Pruritus [Recovered/Resolved]
  - Type I hypersensitivity [Recovered/Resolved]
  - Urticaria [Recovered/Resolved]
